FAERS Safety Report 13363752 (Version 1)
Quarter: 2017Q1

REPORT INFORMATION
  Report Type: Report from Study
  Country: US (occurrence: US)
  Receive Date: 20170323
  Receipt Date: 20170323
  Transmission Date: 20170429
  Serious: No
  Sender: FDA-Public Use
  Company Number: US-009507513-1703USA010585

PATIENT
  Sex: Female

DRUGS (1)
  1. NEXPLANON [Suspect]
     Active Substance: ETONOGESTREL
     Indication: CONTRACEPTION
     Route: 059

REACTIONS (11)
  - Sensation of foreign body [Unknown]
  - Complication associated with device [Recovered/Resolved]
  - Pain of skin [Not Recovered/Not Resolved]
  - Negative thoughts [Unknown]
  - Scar [Unknown]
  - Feeling abnormal [Unknown]
  - Complication of device removal [Recovered/Resolved]
  - Contusion [Unknown]
  - Encapsulation reaction [Recovered/Resolved]
  - Frustration tolerance decreased [Unknown]
  - Stress [Unknown]
